FAERS Safety Report 5846556-3 (Version None)
Quarter: 2008Q3

REPORT INFORMATION
  Report Type: 
  Country: None (occurrence: None)
  Receive Date: 20080815
  Receipt Date: 20080801
  Transmission Date: 20090109
  Serious: Yes (Hospitalization, Other)
  Sender: FDA-Public Use
  Company Number: ES-ELI_LILLY_AND_COMPANY-ES200808000762

PATIENT
  Age: 87 Year
  Sex: Male

DRUGS (4)
  1. FORTEO [Suspect]
     Indication: OSTEOPOROSIS
     Dosage: 20 UG, UNKNOWN
     Route: 058
     Dates: start: 20071120
  2. EUGLUCON [Concomitant]
     Indication: DIABETES MELLITUS
     Dosage: UNK, UNK
     Route: 065
  3. NOLOTIL [Concomitant]
     Indication: PAIN
     Dosage: UNK, UNK
     Route: 065
  4. METFORMIN HCL [Concomitant]
     Dosage: UNK, UNK
     Route: 065

REACTIONS (4)
  - BACK PAIN [None]
  - BLOOD URINE PRESENT [None]
  - PROSTATE CANCER [None]
  - URINARY RETENTION [None]
